FAERS Safety Report 6790747-4 (Version None)
Quarter: 2010Q2

REPORT INFORMATION
  Report Type: 
  Country: None (occurrence: None)
  Receive Date: 20100624
  Receipt Date: 20100616
  Transmission Date: 20101027
  Serious: Yes (Hospitalization, Other)
  Sender: FDA-Public Use
  Company Number: US-ASTRAZENECA-2010SE28160

PATIENT
  Age: 48 Year
  Sex: Male

DRUGS (4)
  1. ATENOLOL [Suspect]
     Indication: BLOOD PRESSURE INCREASED
     Route: 048
  2. IBUPROFEN [Concomitant]
  3. METHYLPREDNISOLONE [Concomitant]
     Dosage: 30 MG/KG OVER 45 MINUTES
  4. METHYLPREDNISOLONE [Concomitant]
     Dosage: 5.4 MG/KG/H OVER 23 HOURS

REACTIONS (2)
  - HYPOTENSION [None]
  - SPINAL SHOCK [None]
